FAERS Safety Report 17669677 (Version 1)
Quarter: 2020Q2

REPORT INFORMATION
  Report Type: Spontaneous
  Country: FR (occurrence: FR)
  Receive Date: 20200415
  Receipt Date: 20200415
  Transmission Date: 20200713
  Serious: Yes (Hospitalization)
  Sender: FDA-Public Use
  Company Number: FR-SUN PHARMACEUTICAL INDUSTRIES LTD-2020RR-244103

PATIENT
  Age: 83 Year
  Sex: Female

DRUGS (8)
  1. COLCHIMAX, COMPRIME PELLICULE [Suspect]
     Active Substance: COLCHICINE\OPIUM\TIEMONIUM METHYLSULFATE
     Indication: PRODUCT USED FOR UNKNOWN INDICATION
     Dosage: 0.5 DOSAGE FORM, DAILY
     Route: 048
  2. ALLOPURINOL. [Suspect]
     Active Substance: ALLOPURINOL
     Indication: GOUT
     Dosage: 200 MILLIGRAMS, DAILY
     Route: 048
  3. BISOCE 5 MG, COMPRIME PELLICULE SECABLE [Concomitant]
     Active Substance: BISOPROLOL FUMARATE
     Indication: PRODUCT USED FOR UNKNOWN INDICATION
     Dosage: 5 MILLIGRAMS, DAILY
     Route: 048
  4. RESITUNE 75 MG, COMPRIME GASTRO-RESISTANT [Concomitant]
     Active Substance: ASPIRIN
     Indication: PRODUCT USED FOR UNKNOWN INDICATION
     Dosage: 75 MILLIGRAMS, DAILY
     Route: 048
  5. MODOPAR 62,5 (50 MG/12,5 MG), GELULE [Concomitant]
     Active Substance: BENSERAZIDE HYDROCHLORIDE\LEVODOPA
     Indication: PRODUCT USED FOR UNKNOWN INDICATION
     Dosage: 3 DOSAGE FORMS, DAILY
     Route: 048
  6. ATARAX [Concomitant]
     Active Substance: HYDROXYZINE HYDROCHLORIDE
     Indication: PRODUCT USED FOR UNKNOWN INDICATION
     Dosage: 25 MILLIGRAMS, DAILY
     Route: 048
  7. EUPRESSYL 30 MG, GELULE [Concomitant]
     Active Substance: URAPIDIL HYDROCHLORIDE
     Indication: PRODUCT USED FOR UNKNOWN INDICATION
     Dosage: 60 MILLIGRAMS, DAILY
     Route: 048
  8. BILASKA 20 MG, COMPRIME [Suspect]
     Active Substance: BILASTINE
     Indication: PRODUCT USED FOR UNKNOWN INDICATION
     Dosage: 20 MILLIGRAMS, DAILY
     Route: 048

REACTIONS (2)
  - Diarrhoea [Recovering/Resolving]
  - Proctitis [Recovering/Resolving]

NARRATIVE: CASE EVENT DATE: 201911
